FAERS Safety Report 11046826 (Version 4)
Quarter: 2016Q1

REPORT INFORMATION
  Report Type: Report from Study
  Country: US (occurrence: US)
  Receive Date: 20150420
  Receipt Date: 20160303
  Transmission Date: 20160525
  Serious: Yes (Other)
  Sender: FDA-Public Use
  Company Number: US-AMGEN-USASP2015037182

PATIENT
  Age: 76 Year
  Sex: Female

DRUGS (2)
  1. ENBREL [Suspect]
     Active Substance: ETANERCEPT
     Indication: PSORIASIS
     Dosage: UNK
     Route: 065
     Dates: start: 20050601
  2. ENBREL [Suspect]
     Active Substance: ETANERCEPT
     Indication: ARTHRITIS

REACTIONS (6)
  - Hand fracture [Recovered/Resolved]
  - Contusion [Recovered/Resolved]
  - Concussion [Recovered/Resolved]
  - Fall [Recovered/Resolved]
  - Limb operation [Unknown]
  - Accident [Unknown]

NARRATIVE: CASE EVENT DATE: 20150213
